FAERS Safety Report 21763383 (Version 2)
Quarter: 2023Q1

REPORT INFORMATION
  Report Type: Report from Study
  Country: JP (occurrence: JP)
  Receive Date: 20221221
  Receipt Date: 20230323
  Transmission Date: 20230418
  Serious: Yes (Life-Threatening)
  Sender: FDA-Public Use
  Company Number: JP-SA-2022SA513029

PATIENT
  Sex: Male
  Weight: 7.113 kg

DRUGS (7)
  1. ALEMTUZUMAB [Suspect]
     Active Substance: ALEMTUZUMAB
     Indication: Bone marrow conditioning regimen
     Dosage: 0.08 MG/KG, 1X
     Route: 041
     Dates: start: 20210930, end: 20210930
  2. ALEMTUZUMAB [Suspect]
     Active Substance: ALEMTUZUMAB
     Dosage: 0.16 MG/KG, QD
     Route: 041
     Dates: start: 20210927, end: 20210929
  3. FLUDARA [Suspect]
     Active Substance: FLUDARABINE PHOSPHATE
     Indication: Product used for unknown indication
     Dosage: 15.75 MG, QD
     Route: 042
     Dates: start: 20211002, end: 20211005
  4. ETOPOSIDE [Suspect]
     Active Substance: ETOPOSIDE
     Indication: Product used for unknown indication
     Dosage: 10 MG, QD
     Route: 042
     Dates: start: 20210716, end: 20210916
  5. BUSULFAN [Suspect]
     Active Substance: BUSULFAN
     Indication: Product used for unknown indication
     Dosage: 3.6 MG, QID
     Route: 042
     Dates: start: 20211006, end: 20211010
  6. GANCICLOVIR [Concomitant]
     Active Substance: GANCICLOVIR
     Indication: Infection prophylaxis
     Dosage: 35 MG, BID
     Route: 042
     Dates: start: 20210913, end: 20211030
  7. MICAFUNGIN SODIUM [Concomitant]
     Active Substance: MICAFUNGIN SODIUM
     Indication: Infection prophylaxis
     Dosage: DAILY DOSE: 30 MG
     Route: 042
     Dates: start: 20210916, end: 20211030

REACTIONS (1)
  - Hepatic enzyme abnormal [Recovering/Resolving]

NARRATIVE: CASE EVENT DATE: 20211029
